FAERS Safety Report 15708455 (Version 8)
Quarter: 2019Q2

REPORT INFORMATION
  Report Type: Report from Study
  Country: US (occurrence: US)
  Receive Date: 20181211
  Receipt Date: 20190410
  Transmission Date: 20190711
  Serious: Yes (Death, Hospitalization, Other)
  Sender: FDA-Public Use
  Company Number: US-GILEAD-2018-0379390

PATIENT
  Age: 77 Year
  Sex: Female
  Weight: 60.9 kg

DRUGS (36)
  1. CODEINE AND GUAIFENESIN [Concomitant]
     Active Substance: CODEINE\GUAIFENESIN
  2. NEXIUM [Concomitant]
     Active Substance: ESOMEPRAZOLE MAGNESIUM
  3. ESTRACE [Concomitant]
     Active Substance: ESTRADIOL
  4. ALBUTEROL [SALBUTAMOL] [Concomitant]
     Active Substance: ALBUTEROL
  5. MONTELUKAST [Concomitant]
     Active Substance: MONTELUKAST SODIUM
  6. PREDNISONE. [Concomitant]
     Active Substance: PREDNISONE
  7. ALLOPURINOL. [Concomitant]
     Active Substance: ALLOPURINOL
  8. ZOFRAN [Concomitant]
     Active Substance: ONDANSETRON HYDROCHLORIDE
  9. LASIX [Concomitant]
     Active Substance: FUROSEMIDE
  10. ACETAMINOPHEN. [Concomitant]
     Active Substance: ACETAMINOPHEN
  11. TESSALON [Concomitant]
     Active Substance: BENZONATATE
  12. BUDESONIDE. [Concomitant]
     Active Substance: BUDESONIDE
  13. DIPHENHYDRAMINE. [Concomitant]
     Active Substance: DIPHENHYDRAMINE
  14. DOCUSATE;SENNA [Concomitant]
  15. IPRATROPIUM [Concomitant]
     Active Substance: IPRATROPIUM
  16. BIOTIN [Concomitant]
     Active Substance: BIOTIN
  17. NORCO [Concomitant]
     Active Substance: ACETAMINOPHEN\HYDROCODONE BITARTRATE
  18. FERROUS SULFATE. [Concomitant]
     Active Substance: FERROUS SULFATE
  19. LIDODERM [Concomitant]
     Active Substance: LIDOCAINE
  20. CLARITIN [CLARITHROMYCIN] [Concomitant]
     Active Substance: CLARITHROMYCIN
  21. MIRALAX [Concomitant]
     Active Substance: POLYETHYLENE GLYCOL 3350
  22. ELIQUIS [Concomitant]
     Active Substance: APIXABAN
  23. GABAPENTIN. [Concomitant]
     Active Substance: GABAPENTIN
  24. AMBRISENTAN [Suspect]
     Active Substance: AMBRISENTAN
     Indication: PULMONARY ARTERIAL HYPERTENSION
     Dosage: 10 MG, QD
     Route: 065
     Dates: start: 20180911
  25. DILTIAZEM. [Concomitant]
     Active Substance: DILTIAZEM
  26. PREMARIN [Concomitant]
     Active Substance: ESTROGENS, CONJUGATED
  27. FENTANYL. [Concomitant]
     Active Substance: FENTANYL
  28. VITAMIN D2 [Concomitant]
     Active Substance: ERGOCALCIFEROL
  29. MECLIZINE [Concomitant]
     Active Substance: MECLIZINE HYDROCHLORIDE
  30. VITAMIN B COMPLEX [Concomitant]
     Active Substance: CYANOCOBALAMIN\DEXPANTHENOL\NIACINAMIDE\PYRIDOXINE HYDROCHLORIDE\RIBOFLAVIN 5^-PHOSPHATE SODIUM\THIAMINE HYDROCHLORIDE\VITAMIN B COMPLEX
  31. AMBRISENTAN [Suspect]
     Active Substance: AMBRISENTAN
     Dosage: 5 UNK
     Route: 048
  32. METOPROLOL. [Concomitant]
     Active Substance: METOPROLOL
  33. CARTIA XT [Concomitant]
     Active Substance: DILTIAZEM HYDROCHLORIDE
  34. REQUIP [Concomitant]
     Active Substance: ROPINIROLE HYDROCHLORIDE
  35. LEXAPRO [Concomitant]
     Active Substance: ESCITALOPRAM OXALATE
  36. MELATONIN [Concomitant]
     Active Substance: MELATONIN

REACTIONS (8)
  - Death [Fatal]
  - Pneumonia [Unknown]
  - Acute kidney injury [Not Recovered/Not Resolved]
  - Hypotension [Recovered/Resolved]
  - Cardiac disorder [Recovered/Resolved]
  - Cardiac failure congestive [Unknown]
  - Dyspnoea [Recovered/Resolved]
  - Dyspnoea [Not Recovered/Not Resolved]

NARRATIVE: CASE EVENT DATE: 20190118
